FAERS Safety Report 12656808 (Version 1)
Quarter: 2016Q3

REPORT INFORMATION
  Report Type: Spontaneous
  Country: US (occurrence: US)
  Receive Date: 20160816
  Receipt Date: 20160816
  Transmission Date: 20161109
  Serious: No
  Sender: FDA-Public Use
  Company Number: US-PERRIGO-16US014904

PATIENT
  Age: 25 Year
  Sex: Female

DRUGS (2)
  1. LORATADINE. [Suspect]
     Active Substance: LORATADINE
     Indication: HYPERSENSITIVITY
     Dosage: 10 MG, QD
     Route: 048
     Dates: start: 201603, end: 201603
  2. SPIRULINA                          /01514001/ [Concomitant]
     Active Substance: SPIRULINA
     Indication: ROUTINE HEALTH MAINTENANCE
     Dosage: UNK
     Route: 065

REACTIONS (4)
  - Nasal discomfort [Recovered/Resolved]
  - Somnolence [Recovered/Resolved]
  - Drug ineffective [Unknown]
  - Condition aggravated [Recovered/Resolved]

NARRATIVE: CASE EVENT DATE: 201603
